FAERS Safety Report 23625781 (Version 1)
Quarter: 2024Q1

REPORT INFORMATION
  Report Type: Spontaneous
  Country: US (occurrence: US)
  Receive Date: 20240313
  Receipt Date: 20240313
  Transmission Date: 20240409
  Serious: No
  Sender: FDA-Public Use
  Company Number: US-APOTEX-2023AP016339

PATIENT
  Sex: Female

DRUGS (3)
  1. FLUTICASONE PROPIONATE [Suspect]
     Active Substance: FLUTICASONE PROPIONATE
     Indication: Product used for unknown indication
     Dosage: 2 DOSAGE FORM, BID  (1 SPRAY EACH NOSTRIL TWICE DAILY OR 2 SPRAYS IN EACH NOSTRIL DAILY)
     Route: 045
     Dates: start: 2022
  2. FLUTICASONE PROPIONATE [Suspect]
     Active Substance: FLUTICASONE PROPIONATE
     Dosage: 2 DOSAGE FORM, BID (1 SPRAY EACH NOSTRIL TWICE DAILY OR 2 SPRAYS IN EACH NOSTRIL DAILY)
     Route: 045
     Dates: start: 2023
  3. FLUTICASONE PROPIONATE [Suspect]
     Active Substance: FLUTICASONE PROPIONATE
     Dosage: 2 DOSAGE FORM, BID (1 SPRAY EACH NOSTRIL TWICE DAILY OR 2 SPRAYS IN EACH NOSTRIL DAILY)
     Route: 045
     Dates: start: 2023

REACTIONS (4)
  - Discomfort [Unknown]
  - Product taste abnormal [Unknown]
  - Product odour abnormal [Unknown]
  - Product quality issue [Unknown]

NARRATIVE: CASE EVENT DATE: 20230101
